FAERS Safety Report 17381384 (Version 1)
Quarter: 2020Q1

REPORT INFORMATION
  Report Type: Not Available
  Country: US (occurrence: US)
  Receive Date: 20200206
  Receipt Date: 20200206
  Transmission Date: 20200409
  Serious: Yes (Hospitalization, Other)
  Sender: FDA-Public Use
  Company Number: US-AMAG PHARMACEUTICALS, INC.-AMAG201900513

PATIENT
  Age: 0 Year
  Sex: Male
  Weight: 1.55 kg

DRUGS (1)
  1. HYDROXYPROGESTERONE CAPROATE. [Suspect]
     Active Substance: HYDROXYPROGESTERONE CAPROATE
     Indication: PREMATURE DELIVERY
     Dosage: 250 MG/ML, WEEKLY
     Route: 064
     Dates: start: 20181009, end: 20190204

REACTIONS (3)
  - Foetal growth restriction [Unknown]
  - Foetal heart rate abnormal [Unknown]
  - Premature baby [Unknown]

NARRATIVE: CASE EVENT DATE: 2019
